FAERS Safety Report 19786922 (Version 1)
Quarter: 2021Q3

REPORT INFORMATION
  Report Type: Spontaneous
  Country: CN (occurrence: CN)
  Receive Date: 20210903
  Receipt Date: 20210903
  Transmission Date: 20211014
  Serious: Yes (Other)
  Sender: FDA-Public Use
  Company Number: CN-ROCHE-2904498

PATIENT
  Age: 65 Year
  Sex: Male

DRUGS (1)
  1. GAVRETO [Suspect]
     Active Substance: PRALSETINIB
     Indication: PRODUCT USED FOR UNKNOWN INDICATION
     Route: 048
     Dates: start: 202107

REACTIONS (7)
  - Infection [Unknown]
  - Pulmonary fibrosis [Unknown]
  - Skin discolouration [Unknown]
  - Abscess limb [Unknown]
  - Dyspnoea [Unknown]
  - Pyrexia [Unknown]
  - Pain in extremity [Unknown]
